FAERS Safety Report 7117182-3 (Version None)
Quarter: 2010Q4

REPORT INFORMATION
  Report Type: 
  Country: None (occurrence: None)
  Receive Date: 20101122
  Receipt Date: 20101116
  Transmission Date: 20110411
  Serious: Yes (Hospitalization)
  Sender: FDA-Public Use
  Company Number: KR-ABBOTT-10P-090-0684529-00

PATIENT
  Age: 46 Year
  Sex: Male

DRUGS (1)
  1. HUMIRA [Suspect]
     Indication: CROHN'S DISEASE
     Dates: start: 20101011

REACTIONS (8)
  - BLOOD ALBUMIN DECREASED [None]
  - DIARRHOEA [None]
  - GENERALISED OEDEMA [None]
  - HAEMATOCHEZIA [None]
  - LOCALISED OEDEMA [None]
  - OEDEMA GENITAL [None]
  - OEDEMA PERIPHERAL [None]
  - POLLAKIURIA [None]
